FAERS Safety Report 19169190 (Version 1)
Quarter: 2021Q2

REPORT INFORMATION
  Report Type: Spontaneous
  Country: SA (occurrence: SA)
  Receive Date: 20210422
  Receipt Date: 20210422
  Transmission Date: 20210717
  Serious: Yes (Other)
  Sender: FDA-Public Use
  Company Number: SA-VIRTUS PHARMACEUTICALS, LLC-2021VTS00026

PATIENT
  Age: 57 Year
  Sex: Female

DRUGS (2)
  1. PROGESTERONE. [Suspect]
     Active Substance: PROGESTERONE
     Indication: VAGINAL HAEMORRHAGE
     Route: 065
  2. XELJANZ [Suspect]
     Active Substance: TOFACITINIB CITRATE
     Indication: RHEUMATOID ARTHRITIS
     Dosage: 11 G
     Route: 065

REACTIONS (3)
  - Hypercoagulation [None]
  - Cardiac ventricular thrombosis [Recovered/Resolved]
  - Heart injury [None]
